FAERS Safety Report 25552583 (Version 1)
Quarter: 2025Q3

REPORT INFORMATION
  Report Type: Spontaneous
  Country: CN (occurrence: CN)
  Receive Date: 20250715
  Receipt Date: 20250715
  Transmission Date: 20251021
  Serious: Yes (Other)
  Sender: BAXTER
  Company Number: None

PATIENT
  Age: 40 Year
  Sex: Female

DRUGS (4)
  1. CYCLOPHOSPHAMIDE [Suspect]
     Active Substance: CYCLOPHOSPHAMIDE
     Indication: Breast cancer female
     Dosage: 1100 MG, QD + 0.9% SODIUM CHLORIDE INJECTION 500ML ST
     Route: 041
     Dates: start: 20250618, end: 20250618
  2. SODIUM CHLORIDE [Suspect]
     Active Substance: SODIUM CHLORIDE
     Dosage: (0.9%) 500 ML, QD ST + CYCLOPHOSPHAMIDE FOR INJECTION (ENDOXAN) 1100MG
     Route: 041
     Dates: start: 20250618, end: 20250618
  3. DEXTROSE [Suspect]
     Active Substance: DEXTROSE MONOHYDRATE
     Dosage: (5%) 250 ML, QD ST + PIRARUBICIN HYDROCHLORIDE FOR INJECTION 84MG
     Route: 041
     Dates: start: 20250618, end: 20250618
  4. PIRARUBICIN HYDROCHLORIDE [Suspect]
     Active Substance: PIRARUBICIN HYDROCHLORIDE
     Indication: Breast cancer female
     Dosage: 84 MG, QD + 5% GLUCOSE 250ML ST
     Route: 041
     Dates: start: 20250618, end: 20250618

REACTIONS (1)
  - Granulocyte count decreased [Recovering/Resolving]

NARRATIVE: CASE EVENT DATE: 20250627
